FAERS Safety Report 21233250 (Version 2)
Quarter: 2023Q2

REPORT INFORMATION
  Report Type: Report from Study
  Country: US (occurrence: US)
  Receive Date: 20220819
  Receipt Date: 20230531
  Transmission Date: 20230722
  Serious: Yes (Life-Threatening, Hospitalization)
  Sender: FDA-Public Use
  Company Number: US-ARGENX-2022-ARGX-US000939

PATIENT
  Sex: Male

DRUGS (1)
  1. VYVGART [Suspect]
     Active Substance: EFGARTIGIMOD ALFA-FCAB
     Indication: Myasthenia gravis
     Dosage: UNK
     Dates: start: 20220606

REACTIONS (12)
  - Pneumonia [Unknown]
  - Sepsis [Unknown]
  - Dyspnoea [Unknown]
  - Dependence on respirator [Unknown]
  - Asthenia [Unknown]
  - Pain [Unknown]
  - Cough [Unknown]
  - Loss of consciousness [Unknown]
  - Gait disturbance [Unknown]
  - Dysstasia [Unknown]
  - General physical health deterioration [Unknown]
  - Bradykinesia [Unknown]
